FAERS Safety Report 16624656 (Version 10)
Quarter: 2020Q4

REPORT INFORMATION
  Report Type: Spontaneous
  Country: US (occurrence: US)
  Receive Date: 20190724
  Receipt Date: 20201204
  Transmission Date: 20210113
  Serious: Yes (Hospitalization, Other)
  Sender: FDA-Public Use
  Company Number: US-PFIZER INC-2019267747

PATIENT
  Age: 77 Year
  Sex: Female
  Weight: 78 kg

DRUGS (6)
  1. IBRANCE [Suspect]
     Active Substance: PALBOCICLIB
     Dosage: UNSPECIFIED DOSE, CYCLIC (11 PILLS INSTEAD OF 21)
     Route: 048
  2. IBRANCE [Suspect]
     Active Substance: PALBOCICLIB
     Dosage: UNK
     Route: 048
  3. IBRANCE [Suspect]
     Active Substance: PALBOCICLIB
     Dosage: 75MG (EVERY OTHER DAY X 21DAYS ON FOLLOWED BY 7 DAYS OFF)
  4. IBRANCE [Suspect]
     Active Substance: PALBOCICLIB
     Dosage: 125 MG, CYCLIC; (EVERY OTHER NIGHT FOR 14 DAYS AND OFF 7 DAYS)
  5. IBRANCE [Suspect]
     Active Substance: PALBOCICLIB
     Indication: BREAST CANCER FEMALE
     Dosage: 125 MG, CYCLIC; (EVERY OTHER NIGHT FOR 2 WEEKS, THEN OFF 7 DAYS OR A WEEK)
     Route: 048
     Dates: start: 2013
  6. IBRANCE [Suspect]
     Active Substance: PALBOCICLIB
     Dosage: 125 MG, ALTERNATE DAY, (EVERY OTHER DAY)

REACTIONS (5)
  - Confusional state [Unknown]
  - Illness [Unknown]
  - Alopecia [Unknown]
  - Off label use [Unknown]
  - Cataract [Recovered/Resolved]
